FAERS Safety Report 5747004-4 (Version None)
Quarter: 2008Q2

REPORT INFORMATION
  Report Type: 
  Country: None (occurrence: None)
  Receive Date: 20080522
  Receipt Date: 20080519
  Transmission Date: 20081010
  Serious: Yes (Hospitalization)
  Sender: FDA-Public Use
  Company Number: FR-WYE-G01556608

PATIENT
  Age: 29 Year
  Sex: Female
  Weight: 150 kg

DRUGS (7)
  1. TYGACIL [Suspect]
     Indication: PERITONITIS
     Dosage: 100 MG IN THE MORNING (11.00 A.M.) AND 50 MG AT MIDNIGHT
     Route: 042
     Dates: start: 20080516, end: 20080516
  2. TYGACIL [Suspect]
     Indication: ESCHERICHIA INFECTION
     Route: 042
     Dates: start: 20080517, end: 20080517
  3. TYGACIL [Suspect]
     Indication: ENTEROCOCCAL INFECTION
     Route: 042
     Dates: start: 20080518
  4. GENTAMICIN [Concomitant]
     Indication: PERITONITIS
     Dosage: 480 MG TOTAL DAILY
     Dates: start: 20080518
  5. GENTAMICIN [Concomitant]
     Indication: ESCHERICHIA INFECTION
  6. GENTAMICIN [Concomitant]
     Indication: ENTEROCOCCAL INFECTION
  7. FLUCONAZOLE [Concomitant]
     Indication: ANTIFUNGAL PROPHYLAXIS
     Dosage: 400 MG TOTAL DAILY
     Dates: start: 20080516

REACTIONS (4)
  - ABDOMINAL WALL ABSCESS [None]
  - CONDITION AGGRAVATED [None]
  - PYREXIA [None]
  - UNDERDOSE [None]
